FAERS Safety Report 13088424 (Version 1)
Quarter: 2017Q1

REPORT INFORMATION
  Report Type: Report from Study
  Country: CA (occurrence: CA)
  Receive Date: 20170105
  Receipt Date: 20170105
  Transmission Date: 20170428
  Serious: Yes (Death, Other)
  Sender: FDA-Public Use
  Company Number: CA-AMGEN-CANSL2017000541

PATIENT
  Age: 71 Year
  Sex: Female

DRUGS (1)
  1. XGEVA [Suspect]
     Active Substance: DENOSUMAB
     Indication: BREAST CANCER
     Dosage: 120 MG (1.70 ML), UNK
     Route: 065
     Dates: start: 20160723

REACTIONS (1)
  - Death [Fatal]

NARRATIVE: CASE EVENT DATE: 20161020
